FAERS Safety Report 12849534 (Version 2)
Quarter: 2018Q2

REPORT INFORMATION
  Report Type: Spontaneous
  Country: US (occurrence: US)
  Receive Date: 20161014
  Receipt Date: 20180507
  Transmission Date: 20180711
  Serious: No
  Sender: FDA-Public Use
  Company Number: US-ROCHE-1748288

PATIENT
  Age: 63 Year
  Sex: Male

DRUGS (5)
  1. ESBRIET [Suspect]
     Active Substance: PIRFENIDONE
     Indication: PULMONARY ARTERIAL HYPERTENSION
     Route: 048
     Dates: start: 20160408
  2. ESBRIET [Suspect]
     Active Substance: PIRFENIDONE
     Route: 048
     Dates: start: 20170517
  3. ESBRIET [Suspect]
     Active Substance: PIRFENIDONE
     Indication: IDIOPATHIC PULMONARY FIBROSIS
     Route: 048
     Dates: start: 20160401
  4. ESBRIET [Suspect]
     Active Substance: PIRFENIDONE
     Route: 048
     Dates: start: 20170605
  5. ESBRIET [Suspect]
     Active Substance: PIRFENIDONE
     Route: 048

REACTIONS (3)
  - Disorientation [Unknown]
  - Decreased appetite [Unknown]
  - Decreased appetite [Unknown]

NARRATIVE: CASE EVENT DATE: 20170601
